FAERS Safety Report 23947710 (Version 1)
Quarter: 2024Q2

REPORT INFORMATION
  Report Type: Spontaneous
  Country: US (occurrence: US)
  Receive Date: 20240606
  Receipt Date: 20240606
  Transmission Date: 20240716
  Serious: No
  Sender: FDA-Public Use
  Company Number: US-VIIV HEALTHCARE LIMITED-US2024AMR067834

PATIENT
  Age: 40 Year
  Sex: Male

DRUGS (2)
  1. RILPIVIRINE [Suspect]
     Active Substance: RILPIVIRINE
     Indication: HIV infection
     Dosage: UNK, Q2M, 600 MG/900 MG INJ 3 ML
     Route: 030
     Dates: end: 202405
  2. CABOTEGRAVIR [Suspect]
     Active Substance: CABOTEGRAVIR
     Indication: HIV infection
     Dosage: UNK, Q2M, 600 MG/900 MG INJ 3 ML
     Route: 030
     Dates: end: 202405

REACTIONS (1)
  - Mobility decreased [Recovered/Resolved]
